FAERS Safety Report 16919555 (Version 2)
Quarter: 2019Q4

REPORT INFORMATION
  Report Type: Spontaneous
  Country: JP (occurrence: JP)
  Receive Date: 20191015
  Receipt Date: 20191030
  Transmission Date: 20200122
  Serious: Yes (Other)
  Sender: FDA-Public Use
  Company Number: JP-MALLINCKRODT-T201906901

PATIENT
  Age: 56 Year
  Sex: Female

DRUGS (3)
  1. PIPERACILLIN AND TAZOBACTAM [Suspect]
     Active Substance: PIPERACILLIN SODIUM\TAZOBACTAM SODIUM
     Indication: ABDOMINAL ABSCESS
     Dosage: UNK
     Route: 042
  2. OFIRMEV [Suspect]
     Active Substance: ACETAMINOPHEN
     Indication: ABDOMINAL ABSCESS
     Dosage: 700 MILLIGRAM
     Route: 042
     Dates: start: 20190909, end: 20190925
  3. COCARL [Suspect]
     Active Substance: ACETAMINOPHEN
     Indication: ABDOMINAL ABSCESS
     Dosage: UNK
     Route: 048

REACTIONS (7)
  - Eosinophil count increased [Recovering/Resolving]
  - Acute kidney injury [Recovering/Resolving]
  - Drug reaction with eosinophilia and systemic symptoms [Recovering/Resolving]
  - Liver disorder [Recovering/Resolving]
  - Tubulointerstitial nephritis [Recovering/Resolving]
  - Pyrexia [Recovering/Resolving]
  - Rash [Recovering/Resolving]
